FAERS Safety Report 8819378 (Version 1)
Quarter: 2012Q4

REPORT INFORMATION
  Report Type: Spontaneous
  Country: US (occurrence: None)
  Receive Date: 20121004
  Receipt Date: 20121004
  Transmission Date: 20130627
  Serious: Yes (Disabling)
  Sender: FDA-Public Use
  Company Number: None

PATIENT
  Age: 36 Year
  Sex: Female
  Weight: 58.97 kg

DRUGS (1)
  1. CIPRO [Suspect]
     Indication: UTI
     Dosage: 5   2/ day
     Dates: start: 20120515, end: 20120517

REACTIONS (10)
  - Arthralgia [None]
  - Arthralgia [None]
  - Anxiety [None]
  - Suicidal ideation [None]
  - Palpitations [None]
  - Tinnitus [None]
  - Pain [None]
  - Influenza like illness [None]
  - Insomnia [None]
  - Depression [None]
